FAERS Safety Report 5302084-5 (Version None)
Quarter: 2007Q2

REPORT INFORMATION
  Report Type: 
  Country: None (occurrence: None)
  Receive Date: 20070419
  Receipt Date: 20070412
  Transmission Date: 20071010
  Serious: Yes (Hospitalization)
  Sender: FDA-Public Use
  Company Number: FR-GLAXOSMITHKLINE-B0444006A

PATIENT
  Age: 90 Year
  Sex: Female

DRUGS (11)
  1. AUGMENTIN '125' [Suspect]
     Indication: CHOLECYSTITIS
     Dosage: 3G PER DAY
     Route: 048
     Dates: start: 20060823, end: 20060905
  2. CIPROFLOXACIN HCL [Suspect]
     Indication: CHOLECYSTITIS
     Dosage: 1G PER DAY
     Route: 048
     Dates: start: 20060823, end: 20060905
  3. LASIX [Suspect]
     Dosage: 80MG PER DAY
     Route: 048
  4. COLCHIMAX [Suspect]
     Dosage: 1UNIT PER DAY
     Route: 048
     Dates: start: 20060824
  5. CARDENSIEL [Concomitant]
     Route: 048
     Dates: start: 20060825
  6. CORDARONE [Concomitant]
     Route: 048
     Dates: start: 20060825
  7. VASTAREL [Concomitant]
     Route: 065
  8. DIFFU K [Concomitant]
     Route: 065
  9. KARDEGIC [Concomitant]
     Route: 065
  10. NEXIUM [Concomitant]
     Route: 065
  11. XANAX [Concomitant]
     Route: 065

REACTIONS (6)
  - ASTHENIA [None]
  - BLOOD CREATININE INCREASED [None]
  - BLOOD UREA INCREASED [None]
  - DEHYDRATION [None]
  - DIARRHOEA [None]
  - RENAL FAILURE ACUTE [None]
